FAERS Safety Report 4388272-3 (Version None)
Quarter: 2004Q3

REPORT INFORMATION
  Report Type: 
  Country: None (occurrence: None)
  Receive Date: 20040701
  Receipt Date: 20040625
  Transmission Date: 20050211
  Serious: Yes (Other)
  Sender: FDA-Public Use
  Company Number: BW-BRISTOL-MYERS SQUIBB COMPANY-12625943

PATIENT
  Age: 26 Year
  Sex: Female

DRUGS (3)
  1. STAVUDINE [Suspect]
     Dosage: HELD FOR 7 DAYS
     Dates: start: 20040322
  2. EFAVIRENZ [Suspect]
     Dosage: HELD FOR 7 DAYS
     Dates: start: 20040322
  3. LAMIVUDINE [Suspect]
     Dosage: HELD FOR 7 DAYS
     Dates: start: 20040322

REACTIONS (1)
  - MENTAL DISORDER [None]
